FAERS Safety Report 6914386-7 (Version None)
Quarter: 2010Q3

REPORT INFORMATION
  Report Type: 
  Country: None (occurrence: None)
  Receive Date: 20100805
  Receipt Date: 20100805
  Transmission Date: 20110219
  Serious: Yes (Death, Life-Threatening, Hospitalization)
  Sender: FDA-Public Use
  Company Number: None

PATIENT
  Age: 83 Year
  Sex: Female
  Weight: 81.1939 kg

DRUGS (3)
  1. PACERONE [Suspect]
     Indication: ARRHYTHMIA
     Dosage: 1 TABLET ONCE A DAY PO
     Route: 048
     Dates: start: 20081201, end: 20100630
  2. AZOR [Suspect]
     Indication: CARDIAC FAILURE CONGESTIVE
     Dosage: 1 TABLET TWICE A DAY PO
     Route: 048
     Dates: start: 20081201, end: 20100703
  3. AZOR [Suspect]
     Indication: HYPERTENSION
     Dosage: 1 TABLET TWICE A DAY PO
     Route: 048
     Dates: start: 20081201, end: 20100703

REACTIONS (2)
  - DRUG TOXICITY [None]
  - PULMONARY FIBROSIS [None]
